FAERS Safety Report 25095343 (Version 1)
Quarter: 2025Q1

REPORT INFORMATION
  Report Type: Spontaneous
  Country: GB (occurrence: GB)
  Receive Date: 20250319
  Receipt Date: 20250319
  Transmission Date: 20250408
  Serious: Yes (Other)
  Sender: BAYER HEALTHCARE PHARMACEUTICALS INC.
  Company Number: GB-BAYER-2025A034216

PATIENT
  Age: 65 Year
  Sex: Male

DRUGS (4)
  1. VITRAKVI [Suspect]
     Active Substance: LAROTRECTINIB
     Dosage: 100 MG, BID
  2. VITRAKVI [Suspect]
     Active Substance: LAROTRECTINIB
     Dosage: 50 MG, BID
  3. RAMIPRIL [Concomitant]
     Active Substance: RAMIPRIL
     Indication: Hypertension
  4. BISOPROLOL [Concomitant]
     Active Substance: BISOPROLOL
     Indication: Hypertension

REACTIONS (7)
  - Metastases to lung [None]
  - Metastases to bone [None]
  - Abnormal weight gain [Recovering/Resolving]
  - Pleuritic pain [None]
  - Oedema peripheral [None]
  - Orthopnoea [None]
  - Pleural effusion [Recovering/Resolving]
